FAERS Safety Report 13715537 (Version 4)
Quarter: 2018Q2

REPORT INFORMATION
  Report Type: Spontaneous
  Country: CZ (occurrence: CZ)
  Receive Date: 20170705
  Receipt Date: 20180419
  Transmission Date: 20180711
  Serious: Yes (Other)
  Sender: FDA-Public Use
  Company Number: CZ-AMGEN-CZESP2017099406

PATIENT
  Age: 79 Year
  Sex: Female
  Weight: 51.5 kg

DRUGS (3)
  1. VITAMIN D [Concomitant]
     Active Substance: CHOLECALCIFEROL
     Dosage: 800 IU, QD
  2. PROLIA [Suspect]
     Active Substance: DENOSUMAB
     Indication: OSTEOPOROSIS POSTMENOPAUSAL
     Dosage: 60 MG, Q6MO
     Route: 058
     Dates: start: 20130314, end: 20160922
  3. CALCIUM [Concomitant]
     Active Substance: CALCIUM
     Dosage: 500 MG, QD

REACTIONS (3)
  - Fall [Unknown]
  - Atypical femur fracture [Recovered/Resolved]
  - Spinal fracture [Not Recovered/Not Resolved]

NARRATIVE: CASE EVENT DATE: 20170214
